FAERS Safety Report 9016191 (Version 1)
Quarter: 2013Q1

REPORT INFORMATION
  Report Type: Spontaneous
  Country: US (occurrence: US)
  Receive Date: 20130116
  Receipt Date: 20130116
  Transmission Date: 20140127
  Serious: Yes (Other)
  Sender: FDA-Public Use
  Company Number: US-009507513-1301USA003617

PATIENT
  Age: 59 Year
  Sex: Female

DRUGS (15)
  1. SINGULAIR [Suspect]
     Indication: NEURALGIA
  2. OXYCODONE HYDROCHLORIDE [Suspect]
     Indication: ARTHRALGIA
     Dosage: 6 MG (TWO 3MG TABLETS), 1X/DAY: QD AT NIGHT
     Route: 048
  3. OXYCODONE HYDROCHLORIDE [Suspect]
     Indication: ASTHMA
     Dosage: 9 MG (THREE 3MG TABLETS), 1X/DAY: QD IN THE EVENING
     Route: 048
  4. OMEPRAZOLE [Suspect]
     Indication: CROHN^S DISEASE
     Dosage: 40 MG, QD
  5. PROZAC [Suspect]
     Indication: DEPRESSION
     Dosage: UNK, 1X/DAY: QD
     Route: 048
  6. TAXOL [Suspect]
     Indication: GASTROOESOPHAGEAL REFLUX DISEASE
     Dosage: 20 MG, QD
  7. AMITRIPTYLINE HYDROCHLORIDE [Suspect]
     Indication: INFLAMMATORY PAIN
     Dosage: 10 MG, QD
  8. AMITRIPTYLINE HYDROCHLORIDE [Suspect]
     Indication: MUSCLE SPASMS
     Dosage: 25 MG, QD
  9. MEDROL [Suspect]
     Dosage: 4 MG, QD
     Route: 048
  10. MEDROL [Suspect]
     Dosage: 4 MG, QD
     Route: 048
  11. MEDROL [Suspect]
     Dosage: 4 MG, BID
     Route: 048
  12. MEDROL [Suspect]
     Dosage: 4 MG, UNK
     Route: 048
  13. LYRICA [Suspect]
     Dosage: 100 MG, BID
     Route: 048
  14. LYRICA [Suspect]
     Dosage: 450 MG, UNK
     Route: 048
  15. PENTASA [Suspect]
     Dosage: 750 MG, (THREE 250 MG CAPSULES), BID
     Route: 048

REACTIONS (14)
  - Weight increased [Unknown]
  - Treatment noncompliance [Unknown]
  - Swelling face [Unknown]
  - Pain [Unknown]
  - Off label use [Unknown]
  - Oedema peripheral [Unknown]
  - Mood altered [Unknown]
  - Hypersensitivity [Unknown]
  - Erythema [Unknown]
  - Emotional disorder [Unknown]
  - Ecchymosis [Unknown]
  - Dyspnoea [Unknown]
  - Dry mouth [Unknown]
  - Drug interaction [Unknown]
